FAERS Safety Report 9026534 (Version 1)
Quarter: 2013Q1

REPORT INFORMATION
  Report Type: Spontaneous
  Country: FR (occurrence: None)
  Receive Date: 20130107
  Receipt Date: 20130107
  Transmission Date: 20140127
  Serious: Yes (Hospitalization)
  Sender: FDA-Public Use
  Company Number: DSA_61672_2013

PATIENT
  Age: 86 Year
  Sex: Female

DRUGS (9)
  1. FLAGYL / 00012501/ (FLAGYL-METRONIDAZOLE RIVASTIGMINE TARTRATE) (NOT SPECIFIED) ) (NOT SPECIFIED) [Suspect]
     Dosage: (6 DF, DAILY)
     Dates: start: 201211, end: 201211
  2. EXELON / 01383202/ (EXELON -RIVASTIGMINE TARTRATE) (NOT SPECIFIED) [Suspect]
     Indication: PRODUCT USED FOR UNKNOWN INDICATION
     Dosage: (2 DF, DAILY)
  3. BISOCE (BISOPROLOL) [Concomitant]
  4. INEXIUM /01479302/ [Concomitant]
  5. LASILIX / 00032601/ [Concomitant]
  6. LIPANTHYL [Concomitant]
  7. PREVICAN (LAMIVUDINE) [Concomitant]
  8. STILLNOX (UNKNOWN) [Concomitant]
  9. SMECTA / 00837601/ [Concomitant]

REACTIONS (5)
  - Convulsion [None]
  - Loss of consciousness [None]
  - Tremor [None]
  - Malaise [None]
  - Postictal state [None]
